FAERS Safety Report 9046780 (Version 1)
Quarter: 2013Q1

REPORT INFORMATION
  Report Type: Spontaneous
  Country: US (occurrence: None)
  Receive Date: 20130128
  Receipt Date: 20130128
  Transmission Date: 20140127
  Serious: Yes (Other)
  Sender: FDA-Public Use
  Company Number: None

PATIENT
  Sex: Female
  Weight: 71.67 kg

DRUGS (4)
  1. OMEPRAZOLE [Suspect]
     Indication: GASTROOESOPHAGEAL REFLUX DISEASE
     Route: 048
     Dates: start: 201301
  2. PROTONIX [Suspect]
     Dosage: SUMMER 2001
     Route: 048
     Dates: start: 200901
  3. PREVACID [Suspect]
     Route: 048
  4. ACIPHEX [Suspect]
     Route: 048

REACTIONS (2)
  - Asthma [None]
  - No therapeutic response [None]
